FAERS Safety Report 21362922 (Version 1)
Quarter: 2022Q3

REPORT INFORMATION
  Report Type: Spontaneous
  Country: US (occurrence: US)
  Receive Date: 20220922
  Receipt Date: 20220922
  Transmission Date: 20221026
  Serious: No
  Sender: FDA-Public Use
  Company Number: US-UNITED THERAPEUTICS-UNT-2022-017527

PATIENT
  Sex: Male

DRUGS (4)
  1. REMODULIN [Suspect]
     Active Substance: TREPROSTINIL
     Indication: Pulmonary arterial hypertension
     Dosage: UNK, CONTINUING
     Route: 058
     Dates: start: 20220320
  2. REMODULIN [Suspect]
     Active Substance: TREPROSTINIL
     Dosage: 0.043 ?G/KG, CONTINUING
     Route: 058
     Dates: start: 2022, end: 202207
  3. REMODULIN [Suspect]
     Active Substance: TREPROSTINIL
     Dosage: 0.0405 ?G/KG, CONTINUING
     Route: 058
     Dates: start: 20220727
  4. REMODULIN [Suspect]
     Active Substance: TREPROSTINIL
     Dosage: 0.0481 ?G/KG, CONTINUING
     Route: 058
     Dates: start: 2022

REACTIONS (5)
  - Erythema [Unknown]
  - Decreased appetite [Unknown]
  - Oxygen saturation decreased [Recovering/Resolving]
  - Heart rate increased [Recovering/Resolving]
  - Cyanosis [Recovered/Resolved]

NARRATIVE: CASE EVENT DATE: 20220101
